FAERS Safety Report 14225050 (Version 3)
Quarter: 2017Q4

REPORT INFORMATION
  Report Type: Report from Study
  Country: CA (occurrence: CA)
  Receive Date: 20171127
  Receipt Date: 20171212
  Transmission Date: 20180321
  Serious: Yes (Hospitalization)
  Sender: FDA-Public Use
  Company Number: CA-ROCHE-2024813

PATIENT
  Sex: Male

DRUGS (6)
  1. COTELLIC [Suspect]
     Active Substance: COBIMETINIB
     Indication: METASTATIC MALIGNANT MELANOMA
     Route: 048
     Dates: start: 20171021, end: 20171121
  2. ZELBORAF [Suspect]
     Active Substance: VEMURAFENIB
     Indication: METASTATIC MALIGNANT MELANOMA
     Route: 048
     Dates: start: 20171021, end: 20171121
  3. HYDROCHLOROTHIAZIDE. [Concomitant]
     Active Substance: HYDROCHLOROTHIAZIDE
  4. DUTASTERIDE. [Concomitant]
     Active Substance: DUTASTERIDE
  5. ROSUVASTATIN. [Concomitant]
     Active Substance: ROSUVASTATIN
  6. VALSAR [Concomitant]

REACTIONS (2)
  - Decreased appetite [Unknown]
  - Dehydration [Unknown]
